FAERS Safety Report 8430604-0 (Version None)
Quarter: 2012Q2

REPORT INFORMATION
  Report Type: 
  Country: None (occurrence: None)
  Receive Date: 20120612
  Receipt Date: 20120605
  Transmission Date: 20120825
  Serious: Yes (Hospitalization)
  Sender: FDA-Public Use
  Company Number: FR-B.I. PHARMACEUTICALS,INC./RIDGEFIELD-2012-FF-00687FF

PATIENT
  Age: 76 Year
  Sex: Male

DRUGS (9)
  1. CEFAZOLINE BASE [Concomitant]
  2. KETAMINE HCL [Concomitant]
  3. KETOPROFEN [Concomitant]
  4. MORPHINE [Concomitant]
  5. PRADAXA [Suspect]
     Route: 048
     Dates: start: 20120424, end: 20120510
  6. FOLIC ACID [Concomitant]
  7. FERROUS SULFATE TAB [Concomitant]
  8. NEFOPAM [Concomitant]
  9. FLURBIPROFEN [Suspect]
     Indication: ANKYLOSING SPONDYLITIS
     Route: 048
     Dates: start: 20120207, end: 20120510

REACTIONS (1)
  - DERMATITIS BULLOUS [None]
